FAERS Safety Report 9386562 (Version 2)
Quarter: 2013Q3

REPORT INFORMATION
  Report Type: Report from Study
  Country: BE (occurrence: BE)
  Receive Date: 20130708
  Receipt Date: 20130720
  Transmission Date: 20140515
  Serious: Yes (Other)
  Sender: FDA-Public Use
  Company Number: BE-US-EMD SERONO, INC.-7221403

PATIENT
  Sex: Female

DRUGS (1)
  1. REBIF [Suspect]
     Indication: MULTIPLE SCLEROSIS
     Dates: start: 201303, end: 20130531

REACTIONS (4)
  - Anger [Unknown]
  - Night sweats [Not Recovered/Not Resolved]
  - Depression [Unknown]
  - Injection site erythema [Unknown]
